FAERS Safety Report 8961385 (Version 1)
Quarter: 2012Q4

REPORT INFORMATION
  Report Type: 
  Country: None (occurrence: US)
  Receive Date: 20121213
  Receipt Date: 20121213
  Transmission Date: 20130627
  Serious: No
  Sender: FDA-Public Use
  Company Number: US-ALLERGAN-1209727US

PATIENT
  Age: 22 Year
  Sex: Female

DRUGS (3)
  1. ACZONE [Suspect]
     Indication: ACNE
     Dosage: applied to affected area daily
     Route: 061
     Dates: start: 201206
  2. VYVANSE [Concomitant]
     Indication: DRUG USE FOR UNKNOWN INDICATION
     Dosage: UNK
  3. SUMADAN WASH [Concomitant]
     Indication: DRUG USE FOR UNKNOWN INDICATION
     Dosage: UNK

REACTIONS (2)
  - Rash [Unknown]
  - Application site pain [Not Recovered/Not Resolved]
